FAERS Safety Report 8623656-6 (Version None)
Quarter: 2012Q3

REPORT INFORMATION
  Report Type: 
  Country: None (occurrence: None)
  Receive Date: 20120827
  Receipt Date: 20120822
  Transmission Date: 20120928
  Serious: Yes (Hospitalization)
  Sender: FDA-Public Use
  Company Number: US-PFIZER INC-2012207156

PATIENT
  Sex: Female

DRUGS (4)
  1. ROXICODONE [Suspect]
  2. OXYCONTIN [Suspect]
     Dosage: 80 MG, UNK
  3. LEXAPRO [Suspect]
  4. ALPRAZOLAM [Suspect]

REACTIONS (4)
  - PAIN [None]
  - HEADACHE [None]
  - CARDIAC DISORDER [None]
  - SOMNOLENCE [None]
